FAERS Safety Report 9970091 (Version 1)
Quarter: 2014Q1

REPORT INFORMATION
  Report Type: Spontaneous
  Country: AU (occurrence: None)
  Receive Date: 20140304
  Receipt Date: 20140304
  Transmission Date: 20141002
  Serious: Yes (Hospitalization)
  Sender: FDA-Public Use
  Company Number: DSU-2014-00349

PATIENT
  Age: 71 Year
  Sex: Male

DRUGS (7)
  1. OLMETEC [Suspect]
     Indication: PRODUCT USED FOR UNKNOWN INDICATION
     Route: 048
  2. BYETTA [Suspect]
     Indication: TYPE 2 DIABETES MELLITUS
     Dosage: 20 MCG (10 MCG, BID), SUBCUTANEOUS
     Route: 058
     Dates: end: 2013
  3. GLICLAZIDE [Suspect]
     Indication: PRODUCT USED FOR UNKNOWN INDICATION
     Dosage: 130 MG (60 MG BID)
  4. KEPPRA [Suspect]
     Indication: PRODUCT USED FOR UNKNOWN INDICATION
     Dosage: 120 MG (60 MG, BID)
  5. METFORMIN HYDROCHLORIDE [Suspect]
     Indication: PRODUCT USED FOR UNKNOWN INDICATION
     Dosage: 2 GBQ (1GBQ, BID), UNKNOWN
  6. VERAPAMIL HYDROCHLORIDE [Suspect]
     Indication: PRODUCT USED FOR UNKNOWN INDICATION
  7. XARELTO [Suspect]
     Indication: ATRIAL FIBRILLATION

REACTIONS (1)
  - Glycosylated haemoglobin increased [None]
